FAERS Safety Report 5340221-7 (Version None)
Quarter: 2007Q2

REPORT INFORMATION
  Report Type: 
  Country: None (occurrence: None)
  Receive Date: 20070405
  Receipt Date: 20061207
  Transmission Date: 20071010
  Serious: No
  Sender: FDA-Public Use
  Company Number: US200612001164

PATIENT
  Age: 68 Year
  Sex: Female

DRUGS (11)
  1. CYMBALTA [Suspect]
     Indication: NEUROPATHY
     Dosage: 20 MG, ORAL
     Route: 048
     Dates: start: 20061116, end: 20061201
  2. LOPID [Concomitant]
  3. METAMUCIL (GLUCOSE MONOHYDRATE, ISPAGHULA HUSK) [Concomitant]
  4. NEXIUM [Concomitant]
  5. FOSAMAX [Concomitant]
  6. REMERON [Concomitant]
  7. VITAMIN B COMPLEX CUM PROCAIN (CALCIUM PANTOTHENATE, NICOTINAMIDE, PRO [Concomitant]
  8. IRON (IRON) [Concomitant]
  9. ATENOLOL [Concomitant]
  10. CLONAZEPAM [Concomitant]
  11. VITAMINS, OTHER COMBINATIONS [Concomitant]

REACTIONS (4)
  - ABNORMAL BEHAVIOUR [None]
  - MUSCLE SPASMS [None]
  - MUSCLE TIGHTNESS [None]
  - PAIN [None]
